FAERS Safety Report 7165500-2 (Version None)
Quarter: 2010Q4

REPORT INFORMATION
  Report Type: 
  Country: None (occurrence: None)
  Receive Date: 20101215
  Receipt Date: 20101002
  Transmission Date: 20110411
  Serious: No
  Sender: FDA-Public Use
  Company Number: US-AMGEN-KDL382142

PATIENT

DRUGS (1)
  1. ENBREL [Suspect]
     Indication: PSORIASIS
     Dosage: 50 MG, QWK
     Route: 058
     Dates: start: 20090616

REACTIONS (10)
  - DECREASED APPETITE [None]
  - DYSGEUSIA [None]
  - FURUNCLE [None]
  - HAIR TEXTURE ABNORMAL [None]
  - NEPHROLITHIASIS [None]
  - OSTEOARTHRITIS [None]
  - PSORIASIS [None]
  - THERAPEUTIC RESPONSE DECREASED [None]
  - THYROID DISORDER [None]
  - WEIGHT DECREASED [None]
